FAERS Safety Report 25425247 (Version 2)
Quarter: 2025Q2

REPORT INFORMATION
  Report Type: Spontaneous
  Country: FR (occurrence: FR)
  Receive Date: 20250611
  Receipt Date: 20250617
  Transmission Date: 20250716
  Serious: Yes (Hospitalization, Disabling)
  Sender: NOVARTIS
  Company Number: FR-002147023-NVSC2025FR092817

PATIENT
  Age: 42 Year
  Sex: Female
  Weight: 55 kg

DRUGS (7)
  1. CYCLOSPORINE [Suspect]
     Active Substance: CYCLOSPORINE
     Indication: Product used for unknown indication
     Dosage: 108 UNK, QD (MG/J)
     Route: 042
     Dates: start: 20190525, end: 20201010
  2. MYCOPHENOLATE MOFETIL [Suspect]
     Active Substance: MYCOPHENOLATE MOFETIL
     Indication: Product used for unknown indication
     Dosage: 2000 MG, QD
     Route: 042
     Dates: start: 20190526, end: 20190528
  3. FLUDARABINE [Suspect]
     Active Substance: FLUDARABINE PHOSPHATE
     Indication: Product used for unknown indication
     Dosage: 625 UNK, QD (MG/J)
     Route: 042
     Dates: start: 20190512, end: 20190515
  4. BUSULFAN [Suspect]
     Active Substance: BUSULFAN
     Indication: Product used for unknown indication
     Dosage: 174 UNK, QD (MG/J)
     Route: 042
     Dates: start: 20190512, end: 20190514
  5. THIOTEPA [Suspect]
     Active Substance: THIOTEPA
     Indication: Product used for unknown indication
     Dosage: 270 UNK, QD (MG/J)
     Route: 042
     Dates: start: 20190510, end: 20190511
  6. CYCLOPHOSPHAMIDE [Suspect]
     Active Substance: CYCLOPHOSPHAMIDE
     Indication: Product used for unknown indication
     Dosage: 5400 UNK, QD (MG/J)
     Route: 042
     Dates: start: 20190527, end: 20190528
  7. PREDNISONE [Concomitant]
     Active Substance: PREDNISONE
     Indication: Product used for unknown indication
     Dosage: 1 MG, QD
     Route: 065
     Dates: start: 20240616

REACTIONS (5)
  - Bipolar disorder [Recovered/Resolved]
  - Mania [Recovered/Resolved]
  - Euphoric mood [Recovered/Resolved]
  - Disturbance in attention [Recovered/Resolved]
  - Tachyphrenia [Recovered/Resolved]

NARRATIVE: CASE EVENT DATE: 20190716
